FAERS Safety Report 6622154-9 (Version None)
Quarter: 2010Q1

REPORT INFORMATION
  Report Type: 
  Country: None (occurrence: None)
  Receive Date: 20100309
  Receipt Date: 20100301
  Transmission Date: 20100710
  Serious: Yes (Hospitalization)
  Sender: FDA-Public Use
  Company Number: US-BRISTOL-MYERS SQUIBB COMPANY-14997779

PATIENT
  Age: 64 Year
  Sex: Male
  Weight: 92 kg

DRUGS (4)
  1. ERBITUX [Suspect]
     Indication: NON-SMALL CELL LUNG CANCER
     Dosage: 400MG/M2 ON DAY1 ALSO 250MG/M2 ON DAY 8,15,2,29,36,43,50,57,64,71,78,85,92,99,
     Dates: start: 20091207, end: 20091221
  2. TAXOL [Suspect]
     Indication: NON-SMALL CELL LUNG CANCER
     Dosage: 45MG/M2 ON DAY 8,15,22,29,36 AND 43 AND 200MG/M2 ON DAYS 71 AND 92.FIRST COURSE:7DEC09.
     Dates: start: 20091207, end: 20100215
  3. CARBOPLATIN [Suspect]
     Indication: NON-SMALL CELL LUNG CANCER
     Dosage: AUC2- ON DAYS 8,15,22,29,36 AND 43 AND AUC6 ON DAY 71 AND 92.FIRST COURSE:7DEC09
     Dates: start: 20091207, end: 20100215
  4. RADIATION THERAPY [Suspect]
     Indication: NON-SMALL CELL LUNG CANCER
     Dosage: 1 DF = 70 GY NO OF FRACTION: 35 NO OF ELAPSED DAYS: 58
     Dates: start: 20091207, end: 20100210

REACTIONS (12)
  - ATELECTASIS [None]
  - DECREASED APPETITE [None]
  - DEHYDRATION [None]
  - EPISTAXIS [None]
  - HYPOALBUMINAEMIA [None]
  - LYMPHOPENIA [None]
  - MUSCULAR WEAKNESS [None]
  - NEUTROPENIA [None]
  - PNEUMONITIS [None]
  - PULMONARY HAEMORRHAGE [None]
  - SYNCOPE [None]
  - WHITE BLOOD CELL DISORDER [None]
